FAERS Safety Report 5104278-0 (Version None)
Quarter: 2006Q3

REPORT INFORMATION
  Report Type: 
  Country: None (occurrence: None)
  Receive Date: 20060912
  Receipt Date: 20060912
  Transmission Date: 20061208
  Serious: Yes (Hospitalization)
  Sender: FDA-Public Use
  Company Number: None

PATIENT
  Sex: Male

DRUGS (8)
  1. WARFARIN SODIUM [Suspect]
     Indication: DEEP VEIN THROMBOSIS
     Dosage: 5 MG DAILY PO
     Route: 048
     Dates: start: 20060120, end: 20060128
  2. ENOXAPARIN SODIUM [Suspect]
     Indication: DEEP VEIN THROMBOSIS
     Dosage: 60 MG DAILY SQ
     Route: 058
     Dates: start: 20060124, end: 20060128
  3. PREDNISONE [Concomitant]
  4. KETOCONAZOLE [Concomitant]
  5. PSYLLIUM [Concomitant]
  6. HYDROCORTISONE RECTAL SUPP [Concomitant]
  7. DOCUSATE [Concomitant]
  8. CALCIUM CARBONATE [Concomitant]

REACTIONS (1)
  - HAEMATEMESIS [None]
